FAERS Safety Report 18686562 (Version 1)
Quarter: 2020Q4

REPORT INFORMATION
  Report Type: Other
  Country: TN (occurrence: TN)
  Receive Date: 20201231
  Receipt Date: 20201231
  Transmission Date: 20210114
  Serious: Yes (Other)
  Sender: FDA-Public Use
  Company Number: TN-ROCHE-2740399

PATIENT
  Sex: Female

DRUGS (1)
  1. RITUXIMAB. [Suspect]
     Active Substance: RITUXIMAB
     Indication: CASTLEMAN^S DISEASE
     Route: 065

REACTIONS (5)
  - Ascites [Unknown]
  - Inflammation [Unknown]
  - Pleurisy [Unknown]
  - Anaemia [Unknown]
  - Lymphadenopathy [Unknown]
